FAERS Safety Report 9391241 (Version 1)
Quarter: 2013Q3

REPORT INFORMATION
  Report Type: Spontaneous
  Country: FR (occurrence: FR)
  Receive Date: 20130709
  Receipt Date: 20130709
  Transmission Date: 20140515
  Serious: Yes (Other)
  Sender: FDA-Public Use
  Company Number: FR-009507513-1307FRA000937

PATIENT
  Age: 82 Year
  Sex: Female

DRUGS (8)
  1. FOSAVANCE [Suspect]
     Indication: ULNA FRACTURE
     Dosage: UNK
     Route: 048
     Dates: start: 201108, end: 201210
  2. DEPAKOTE [Concomitant]
  3. LYRICA [Concomitant]
  4. STILNOX [Concomitant]
  5. ZOLPIDEM TARTRATE [Concomitant]
  6. ALPRAZOLAM [Concomitant]
  7. PARIET [Concomitant]
  8. LEVOTHYROX [Concomitant]

REACTIONS (2)
  - Anaemia [Unknown]
  - Oesophagitis ulcerative [Unknown]
